FAERS Safety Report 4529305-0 (Version None)
Quarter: 2004Q4

REPORT INFORMATION
  Report Type: 
  Country: None (occurrence: None)
  Receive Date: 20041214
  Receipt Date: 20041129
  Transmission Date: 20050328
  Serious: Yes (Life-Threatening)
  Sender: FDA-Public Use
  Company Number: 2004105306

PATIENT
  Age: 80 Year
  Sex: Male
  Weight: 50 kg

DRUGS (5)
  1. SOLU-MEDROL [Suspect]
     Indication: OSTEOARTHRITIS
     Dosage: 5 MG (5 MG, 1 IN 1 D), INTRAVENOUS
     Route: 042
  2. HEPARIN CALCIUM [Suspect]
     Indication: ILL-DEFINED DISORDER
     Dosage: 0.2 ML (0.1 ML, 2 IN 1 D), SUBCUTANEOUS
     Route: 058
     Dates: start: 20040512, end: 20040615
  3. INSULIN GLARGINE (INSULIN GLARGINE) [Suspect]
     Indication: DIABETES MELLITUS
     Dosage: SUBCUTANEOUS
     Route: 058
     Dates: start: 20040520
  4. CLOXACILLIN SODIUM [Suspect]
     Indication: SEPSIS
     Dosage: 3 GRAM (1 GRAM, 3 IN 1 D), INTRAVENOUS
     Route: 042
     Dates: start: 20040609, end: 20040616
  5. CLINOMEL (AMINO ACIDS NOS, CALCIUM CHLORIDE DIHYDRATE, ELECTROLYTES NO [Suspect]
     Indication: PARENTERAL NUTRITION
     Dosage: 2L (1 IN 1 D), INTRAVENOUS
     Route: 042
     Dates: start: 20040514, end: 20040618

REACTIONS (7)
  - ARTHRITIS [None]
  - DISEASE RECURRENCE [None]
  - HYPOTHERMIA [None]
  - ILL-DEFINED DISORDER [None]
  - MALNUTRITION [None]
  - SEPSIS [None]
  - THROMBOCYTOPENIA [None]
